FAERS Safety Report 5620272-5 (Version None)
Quarter: 2008Q1

REPORT INFORMATION
  Report Type: 
  Country: None (occurrence: None)
  Receive Date: 20080208
  Receipt Date: 20080201
  Transmission Date: 20080703
  Serious: Yes (Other)
  Sender: FDA-Public Use
  Company Number: D0056000A

PATIENT
  Age: 44 Year
  Sex: Female

DRUGS (12)
  1. VALTREX [Suspect]
     Indication: ANTIVIRAL PROPHYLAXIS
     Route: 048
     Dates: start: 20040225
  2. TAVANIC [Suspect]
     Route: 042
     Dates: start: 20040225
  3. TAZOBACTAM [Suspect]
     Dosage: 4.5MG THREE TIMES PER DAY
     Route: 042
     Dates: start: 20040307, end: 20040310
  4. NOVALGIN [Suspect]
     Indication: PAIN
     Route: 048
     Dates: start: 20040307, end: 20040310
  5. PANTOZOL [Suspect]
     Indication: PROPHYLAXIS
     Dosage: 40MG PER DAY
     Route: 048
  6. SPORANOX [Suspect]
     Indication: INFECTION PROPHYLAXIS
     Dosage: 200MG PER DAY
     Route: 042
     Dates: start: 20040227, end: 20040311
  7. ACIC [Suspect]
     Indication: ANTIVIRAL PROPHYLAXIS
     Dosage: 1250MG PER DAY
     Route: 042
     Dates: start: 20040227, end: 20040314
  8. CASPOFUNGIN [Suspect]
     Indication: INFLAMMATION
     Route: 042
     Dates: start: 20040311
  9. ACTRAPID [Suspect]
     Indication: DIABETES MELLITUS
     Route: 058
     Dates: start: 20040314
  10. CLEXANE [Suspect]
     Indication: THROMBOSIS PROPHYLAXIS
     Route: 058
     Dates: start: 20040314
  11. MULTIPLE MEDICATION [Suspect]
  12. MULTIPLE MEDICATION [Concomitant]

REACTIONS (13)
  - BLISTER [None]
  - GENITAL EROSION [None]
  - GRAFT VERSUS HOST DISEASE [None]
  - INFLAMMATION [None]
  - LIP EROSION [None]
  - MUCOSAL INFLAMMATION [None]
  - NIKOLSKY'S SIGN [None]
  - ORAL MUCOSA EROSION [None]
  - PAIN OF SKIN [None]
  - PAROPHTHALMIA [None]
  - PYREXIA [None]
  - RASH MACULAR [None]
  - STEVENS-JOHNSON SYNDROME [None]
